FAERS Safety Report 9324434 (Version 2)
Quarter: 2013Q4

REPORT INFORMATION
  Report Type: Spontaneous
  Country: US (occurrence: US)
  Receive Date: 20130603
  Receipt Date: 20131120
  Transmission Date: 20140711
  Serious: Yes (Hospitalization, Other)
  Sender: FDA-Public Use
  Company Number: US-BAYER-2013-067893

PATIENT
  Age: 17 Year
  Sex: Female

DRUGS (6)
  1. YAZ [Suspect]
     Dosage: UNK
     Dates: start: 20070503, end: 200907
  2. YASMIN [Suspect]
     Dosage: UNK
  3. ONDANSETRON [Concomitant]
     Dosage: 4 MG, UNK
  4. HYDROCODONE W/APAP [Concomitant]
     Dosage: 5-500 MG TABLETS, 4 DISPENSED
  5. PROMETHAZINE [Concomitant]
     Dosage: 25 MG, UNK
  6. AZITHROMYCIN [Concomitant]
     Dosage: 250 MG TABLETS, 5 DISPENSED

REACTIONS (8)
  - Gallbladder disorder [None]
  - Biliary dyskinesia [None]
  - Injury [None]
  - Pain [None]
  - General physical health deterioration [None]
  - Anxiety [None]
  - Emotional distress [None]
  - Pain [None]
